FAERS Safety Report 5383079-2 (Version None)
Quarter: 2007Q3

REPORT INFORMATION
  Report Type: 
  Country: None (occurrence: None)
  Receive Date: 20070705
  Receipt Date: 20070620
  Transmission Date: 20080115
  Serious: Yes (Other)
  Sender: FDA-Public Use
  Company Number: 2007RR-08175

PATIENT
  Age: 8 Year
  Sex: Male

DRUGS (3)
  1. OFLOXACIN [Suspect]
     Indication: TYPHOID FEVER
     Dosage: 15 MG/KG, QD, ORAL
     Route: 048
  2. PARACETAMOL (ACETAMINOPHEN/PARACETAMOL) [Concomitant]
  3. IBUPROFEN [Concomitant]

REACTIONS (3)
  - ARTHROPATHY [None]
  - DRUG TOXICITY [None]
  - GAIT DISTURBANCE [None]
